FAERS Safety Report 10185407 (Version 2)
Quarter: 2014Q2

REPORT INFORMATION
  Report Type: Report from Study
  Country: DK (occurrence: DK)
  Receive Date: 20140521
  Receipt Date: 20140521
  Transmission Date: 20141212
  Serious: Yes (Hospitalization)
  Sender: FDA-Public Use
  Company Number: PHHO2010DK05663

PATIENT
  Sex: 0

DRUGS (2)
  1. SOM230 [Suspect]
     Indication: ACROMEGALY
     Dosage: EXTENSION BLINDED PHASE
     Route: 030
     Dates: start: 20091218, end: 20100316
  2. SANDOSTATIN LAR [Suspect]
     Indication: ACROMEGALY
     Dosage: CORE PHASE
     Route: 030
     Dates: start: 20090113

REACTIONS (3)
  - Type 2 diabetes mellitus [Recovered/Resolved with Sequelae]
  - Blood sodium decreased [Recovered/Resolved with Sequelae]
  - Blood creatinine increased [Recovered/Resolved with Sequelae]
